FAERS Safety Report 17464584 (Version 1)
Quarter: 2020Q1

REPORT INFORMATION
  Report Type: Spontaneous
  Country: FR (occurrence: FR)
  Receive Date: 20200226
  Receipt Date: 20200226
  Transmission Date: 20200409
  Serious: Yes (Life-Threatening)
  Sender: FDA-Public Use
  Company Number: FR-MYLANLABS-2020M1020732

PATIENT
  Age: 58 Year
  Sex: Male

DRUGS (8)
  1. PROPOFOL LIPURO [Suspect]
     Active Substance: PROPOFOL
     Indication: INDUCTION OF ANAESTHESIA
     Dosage: NON RENSEIGN?E
     Route: 042
     Dates: start: 20190313, end: 20190313
  2. MYLAN REMIFENTANIL [Suspect]
     Active Substance: REMIFENTANIL
     Dosage: UNK
  3. ESMERON [Suspect]
     Active Substance: ROCURONIUM BROMIDE
     Dosage: UNK
  4. MYLAN REMIFENTANIL [Suspect]
     Active Substance: REMIFENTANIL
     Indication: INDUCTION OF ANAESTHESIA
     Dosage: NON RENSEIGN?E
     Route: 042
     Dates: start: 20190313, end: 20190313
  5. ESMERON [Suspect]
     Active Substance: ROCURONIUM BROMIDE
     Indication: INDUCTION OF ANAESTHESIA
     Dosage: NON RENSEIGN?E
     Route: 042
     Dates: start: 20190313, end: 20190313
  6. PROPOFOL LIPURO [Suspect]
     Active Substance: PROPOFOL
     Dosage: UNK
  7. LIDOCAINE AGUETTANT [Suspect]
     Active Substance: LIDOCAINE
     Indication: INDUCTION OF ANAESTHESIA
     Dosage: UNK
     Route: 042
     Dates: start: 20190313, end: 20190313
  8. LIDOCAINE AGUETTANT [Suspect]
     Active Substance: LIDOCAINE
     Dosage: UNK

REACTIONS (1)
  - Anaphylactic shock [Recovered/Resolved]

NARRATIVE: CASE EVENT DATE: 20190313
